FAERS Safety Report 24427633 (Version 1)
Quarter: 2024Q4

REPORT INFORMATION
  Report Type: Spontaneous
  Country: CA (occurrence: CA)
  Receive Date: 20241011
  Receipt Date: 20241011
  Transmission Date: 20250115
  Serious: Yes (Hospitalization, Other)
  Sender: HIKMA
  Company Number: CA-HIKMA PHARMACEUTICALS-CA-H14001-24-09224

PATIENT

DRUGS (6)
  1. PHENYTOIN [Suspect]
     Active Substance: PHENYTOIN
     Indication: Seizure
     Dosage: UNK
     Route: 065
  2. ZELBORAF [Suspect]
     Active Substance: VEMURAFENIB
     Dosage: 240 MILLIGRAM, BID
     Route: 048
  3. ZELBORAF [Suspect]
     Active Substance: VEMURAFENIB
     Dosage: 720 MILLIGRAM, BID
     Route: 048
  4. ZELBORAF [Suspect]
     Active Substance: VEMURAFENIB
     Indication: Metastatic malignant melanoma
     Dosage: 960 MILLIGRAM, BID
     Route: 048
  5. ADVIL [Concomitant]
     Active Substance: IBUPROFEN
     Indication: Product used for unknown indication
     Dosage: UNK
     Route: 065
  6. DEXLANSOPRAZOLE [Concomitant]
     Active Substance: DEXLANSOPRAZOLE
     Indication: Gastrooesophageal reflux disease
     Dosage: 60 MILLIGRAM, QD
     Route: 048

REACTIONS (13)
  - Cerebral infarction [Not Recovered/Not Resolved]
  - Chondroma [Not Recovered/Not Resolved]
  - Coronary artery disease [Not Recovered/Not Resolved]
  - Drug interaction [Not Recovered/Not Resolved]
  - Encephalomalacia [Not Recovered/Not Resolved]
  - Fat tissue increased [Not Recovered/Not Resolved]
  - Gynaecomastia [Not Recovered/Not Resolved]
  - Joint effusion [Not Recovered/Not Resolved]
  - Radiation necrosis [Not Recovered/Not Resolved]
  - Rhinitis [Not Recovered/Not Resolved]
  - Seizure [Not Recovered/Not Resolved]
  - Spinal osteoarthritis [Not Recovered/Not Resolved]
  - Squamous cell carcinoma [Not Recovered/Not Resolved]
